FAERS Safety Report 6001657-4 (Version None)
Quarter: 2008Q4

REPORT INFORMATION
  Report Type: 
  Country: None (occurrence: None)
  Receive Date: 20081215
  Receipt Date: 20081211
  Transmission Date: 20090506
  Serious: Yes (Hospitalization, Other)
  Sender: FDA-Public Use
  Company Number: US-ROXANE LABORATORIES, INC.-2008-RO-00407RO

PATIENT
  Age: 42 Year
  Sex: Male

DRUGS (8)
  1. AZATHIOPRINE [Suspect]
     Indication: COLITIS ULCERATIVE
     Dosage: 50MG
  2. AZATHIOPRINE [Suspect]
  3. AZATHIOPRINE [Suspect]
  4. AZATHIOPRINE [Suspect]
  5. PREDNISONE TAB [Suspect]
     Indication: COLITIS ULCERATIVE
     Dosage: 40MG
  6. PREDNISONE TAB [Suspect]
     Dosage: 15MG
  7. PREDNISONE TAB [Suspect]
     Dosage: 60MG
  8. PREDNISONE TAB [Suspect]

REACTIONS (5)
  - ACUTE FEBRILE NEUTROPHILIC DERMATOSIS [None]
  - ARTHRALGIA [None]
  - CONJUNCTIVITIS [None]
  - DIARRHOEA [None]
  - PYREXIA [None]
